FAERS Safety Report 22166714 (Version 2)
Quarter: 2023Q2

REPORT INFORMATION
  Report Type: Spontaneous
  Country: US (occurrence: US)
  Receive Date: 20230403
  Receipt Date: 20230419
  Transmission Date: 20230722
  Serious: No
  Sender: FDA-Public Use
  Company Number: US-BAYER-2023A039940

PATIENT
  Age: 55 Year

DRUGS (1)
  1. GADAVIST [Suspect]
     Active Substance: GADOBUTROL
     Indication: Magnetic resonance imaging head
     Dosage: 6 ML, ONCE
     Route: 042
     Dates: start: 20230117, end: 20230117

REACTIONS (1)
  - Pruritus [None]

NARRATIVE: CASE EVENT DATE: 20230117
